FAERS Safety Report 20173809 (Version 3)
Quarter: 2022Q1

REPORT INFORMATION
  Report Type: Spontaneous
  Country: US (occurrence: US)
  Receive Date: 20211213
  Receipt Date: 20220121
  Transmission Date: 20220423
  Serious: Yes (Hospitalization, Other)
  Sender: FDA-Public Use
  Company Number: US-QILU PHARMACEUTICAL CO.LTD.-QLU-000246-2021

PATIENT
  Age: 80 Year
  Sex: Female
  Weight: 64.4 kg

DRUGS (23)
  1. CEFAZOLIN [Suspect]
     Active Substance: CEFAZOLIN
     Indication: Staphylococcal infection
     Dosage: 2 GRAM, EVERY 8 HOURS
     Route: 042
     Dates: start: 20201119, end: 20201123
  2. CEFAZOLIN [Suspect]
     Active Substance: CEFAZOLIN
     Indication: Endocarditis
     Dosage: 2 GRAM AT THE RATE OF 600 ML PER HOUR, EVERY 12 HOURS
     Route: 042
     Dates: start: 20201130, end: 20201207
  3. CEFAZOLIN [Suspect]
     Active Substance: CEFAZOLIN
     Indication: Intervertebral discitis
  4. CEFAZOLIN [Suspect]
     Active Substance: CEFAZOLIN
     Indication: Osteomyelitis
  5. CEFTRIAXONE [Concomitant]
     Active Substance: CEFTRIAXONE
     Indication: Sepsis
     Dosage: 2 GRAM AT THE RATE OF 200 ML PER HOUR
     Route: 042
     Dates: start: 20201117, end: 20201117
  6. CEFTRIAXONE [Concomitant]
     Active Substance: CEFTRIAXONE
     Indication: Pneumonia bacterial
  7. CEFTRIAXONE [Concomitant]
     Active Substance: CEFTRIAXONE
     Indication: Urinary tract infection
  8. LEVOFLOXACIN [Concomitant]
     Active Substance: LEVOFLOXACIN
     Indication: Sepsis
     Dosage: 750 MG/ 150 ML AT THE RATE OF 100 ML PER HOUR
     Route: 042
     Dates: start: 20201117, end: 20201117
  9. LEVOFLOXACIN [Concomitant]
     Active Substance: LEVOFLOXACIN
     Indication: Pneumonia bacterial
  10. LEVOFLOXACIN [Concomitant]
     Active Substance: LEVOFLOXACIN
     Indication: Urinary tract infection
  11. PIPERACILLIN SODIUM\TAZOBACTAM SODIUM [Concomitant]
     Active Substance: PIPERACILLIN SODIUM\TAZOBACTAM SODIUM
     Indication: Sepsis
     Dosage: UNK
     Route: 065
     Dates: start: 20201117, end: 20201118
  12. PIPERACILLIN SODIUM\TAZOBACTAM SODIUM [Concomitant]
     Active Substance: PIPERACILLIN SODIUM\TAZOBACTAM SODIUM
     Indication: Pneumonia bacterial
  13. PIPERACILLIN SODIUM\TAZOBACTAM SODIUM [Concomitant]
     Active Substance: PIPERACILLIN SODIUM\TAZOBACTAM SODIUM
     Indication: Urinary tract infection
  14. VANCOMYCIN [Concomitant]
     Active Substance: VANCOMYCIN
     Indication: Sepsis
     Dosage: 1000 MG AT THE RATE OF 260 ML PER HOUR, EVERY 24 HOURS
     Route: 042
     Dates: start: 20201117, end: 20201118
  15. VANCOMYCIN [Concomitant]
     Active Substance: VANCOMYCIN
     Indication: Pneumonia bacterial
     Dosage: 1000 MG, EVERY 24 HOURS
     Route: 042
     Dates: start: 20201123, end: 20201130
  16. VANCOMYCIN [Concomitant]
     Active Substance: VANCOMYCIN
     Indication: Urinary tract infection
  17. VANCOMYCIN [Concomitant]
     Active Substance: VANCOMYCIN
     Indication: Pneumonia
  18. AZITHROMYCIN [Concomitant]
     Active Substance: AZITHROMYCIN
     Indication: Sepsis
     Dosage: 500 MG, EVERY 24 HOURS
     Route: 042
     Dates: start: 20201117, end: 20201118
  19. AZITHROMYCIN [Concomitant]
     Active Substance: AZITHROMYCIN
     Indication: Pneumonia bacterial
  20. AZITHROMYCIN [Concomitant]
     Active Substance: AZITHROMYCIN
     Indication: Urinary tract infection
  21. CEFEPIME [Concomitant]
     Active Substance: CEFEPIME HYDROCHLORIDE
     Indication: Pneumonia
     Dosage: 1 GRAM, EVERY 8 HOURS
     Route: 042
     Dates: start: 20201123, end: 20201130
  22. ERTAPENEM [Concomitant]
     Active Substance: ERTAPENEM
     Indication: Bacteraemia
     Dosage: 1 GRAM, EVERY 24 HOURS
     Route: 042
     Dates: start: 20201130, end: 20201130
  23. ERTAPENEM [Concomitant]
     Active Substance: ERTAPENEM
     Indication: Endocarditis

REACTIONS (3)
  - Haemolytic anaemia [Recovered/Resolved]
  - Eosinophilia [Recovered/Resolved]
  - Cross sensitivity reaction [Unknown]

NARRATIVE: CASE EVENT DATE: 20201207
